FAERS Safety Report 4927632-6 (Version None)
Quarter: 2006Q1

REPORT INFORMATION
  Report Type: 
  Country: None (occurrence: None)
  Receive Date: 20060228
  Receipt Date: 20051111
  Transmission Date: 20060701
  Serious: Yes (Hospitalization, Disabling)
  Sender: FDA-Public Use
  Company Number: US-MERCK-0511USA02061

PATIENT
  Age: 50 Year
  Sex: Male
  Weight: 99 kg

DRUGS (13)
  1. VIOXX [Suspect]
     Indication: PAIN
     Route: 048
     Dates: start: 20010301, end: 20040901
  2. VIOXX [Suspect]
     Route: 048
     Dates: start: 20010301, end: 20040901
  3. GLUCOTROL [Concomitant]
     Route: 065
  4. AVANDIA [Concomitant]
     Route: 065
  5. ZOCOR [Concomitant]
     Indication: LOW DENSITY LIPOPROTEIN INCREASED
     Route: 048
     Dates: start: 20020401, end: 20040101
  6. ACCUPRIL [Concomitant]
     Indication: HYPERTENSION
     Route: 048
     Dates: start: 20020601, end: 20021201
  7. MONOPRIL [Concomitant]
     Indication: HYPERTENSION
     Route: 048
     Dates: start: 20010401, end: 20020501
  8. ATACAND [Concomitant]
     Indication: LOW DENSITY LIPOPROTEIN INCREASED
     Route: 048
     Dates: start: 20030101, end: 20040201
  9. BENICAR [Concomitant]
     Route: 048
     Dates: start: 20040201
  10. ECOTRIN [Concomitant]
     Route: 048
     Dates: start: 20011201, end: 20030601
  11. PLAVIX [Concomitant]
     Route: 048
     Dates: start: 20030601
  12. LIPITOR [Concomitant]
     Indication: LOW DENSITY LIPOPROTEIN INCREASED
     Route: 048
     Dates: start: 20040201
  13. ZETIA [Concomitant]
     Indication: LOW DENSITY LIPOPROTEIN INCREASED
     Route: 048
     Dates: start: 20040501, end: 20050501

REACTIONS (13)
  - ARTHROPATHY [None]
  - BACK INJURY [None]
  - CEREBROVASCULAR ACCIDENT [None]
  - CERVICOBRACHIAL SYNDROME [None]
  - COLONIC POLYP [None]
  - HAEMATURIA [None]
  - HAEMORRHAGIC INFARCTION [None]
  - IMPINGEMENT SYNDROME [None]
  - INJURY [None]
  - INTERVERTEBRAL DISC DEGENERATION [None]
  - INTERVERTEBRAL DISC PROTRUSION [None]
  - NECK INJURY [None]
  - OSTEOARTHRITIS [None]
